FAERS Safety Report 5397501-9 (Version None)
Quarter: 2007Q3

REPORT INFORMATION
  Report Type: 
  Country: None (occurrence: None)
  Receive Date: 20070726
  Receipt Date: 20070717
  Transmission Date: 20080115
  Serious: Yes (Death)
  Sender: FDA-Public Use
  Company Number: FR-TYCO HEALTHCARE/MALLINCKRODT-T200700810

PATIENT

DRUGS (4)
  1. HEXABRIX [Suspect]
     Indication: STENT PLACEMENT
     Dosage: 50 ML, SINGLE
     Route: 013
     Dates: start: 20070507, end: 20070507
  2. LASIX [Suspect]
     Dosage: 60 MG, UNK
     Route: 048
  3. KARDEGIC                           /00002703/ [Suspect]
     Dosage: 75 MG, UNK
     Route: 048
  4. ATACAND [Suspect]
     Route: 048

REACTIONS (1)
  - RENAL FAILURE [None]
